FAERS Safety Report 24593496 (Version 6)
Quarter: 2025Q2

REPORT INFORMATION
  Report Type: Report from Study
  Country: US (occurrence: US)
  Receive Date: 20241108
  Receipt Date: 20250609
  Transmission Date: 20250716
  Serious: Yes (Other)
  Sender: SUNOVION
  Company Number: US-SMPA-2024SPA004462

PATIENT

DRUGS (3)
  1. ORGOVYX [Suspect]
     Active Substance: RELUGOLIX
     Indication: Prostate cancer
     Dosage: 360 MG, SINGLE
     Route: 048
  2. ORGOVYX [Suspect]
     Active Substance: RELUGOLIX
     Dosage: 120 MG, QD
     Route: 048
  3. ASPIRIN [Concomitant]
     Active Substance: ASPIRIN
     Route: 048

REACTIONS (8)
  - Prostate cancer [Unknown]
  - Suicidal ideation [Unknown]
  - Nightmare [Unknown]
  - Abnormal dreams [Unknown]
  - Malaise [Unknown]
  - Cerebral disorder [Unknown]
  - Fatigue [Unknown]
  - Therapy interrupted [Unknown]
